FAERS Safety Report 7709642-9 (Version None)
Quarter: 2011Q3

REPORT INFORMATION
  Report Type: 
  Country: None (occurrence: None)
  Receive Date: 20110825
  Receipt Date: 20110818
  Transmission Date: 20111222
  Serious: Yes (Hospitalization)
  Sender: FDA-Public Use
  Company Number: US-GLAXOSMITHKLINE-A0928940A

PATIENT
  Age: 7 Year
  Sex: Female
  Weight: 22.7 kg

DRUGS (2)
  1. ZOFRAN [Suspect]
     Indication: VOMITING
     Dosage: 1TAB SINGLE DOSE
     Route: 048
     Dates: start: 20110514
  2. NO CONCURRENT MEDICATION [Concomitant]

REACTIONS (5)
  - LOSS OF CONSCIOUSNESS [None]
  - BLINDNESS [None]
  - CATATONIA [None]
  - DYSKINESIA [None]
  - DEPRESSED LEVEL OF CONSCIOUSNESS [None]
